FAERS Safety Report 21921278 (Version 2)
Quarter: 2023Q1

REPORT INFORMATION
  Report Type: Report from Study
  Country: US (occurrence: US)
  Receive Date: 20230127
  Receipt Date: 20230131
  Transmission Date: 20230417
  Serious: Yes (Other)
  Sender: FDA-Public Use
  Company Number: US-ABBVIE-4284596

PATIENT
  Age: 74 Year
  Sex: Male
  Weight: 104.32 kg

DRUGS (3)
  1. HUMIRA [Suspect]
     Active Substance: ADALIMUMAB
     Indication: Crohn^s disease
     Route: 058
     Dates: start: 20220512, end: 20221229
  2. HUMIRA [Suspect]
     Active Substance: ADALIMUMAB
     Route: 058
     Dates: start: 20221229
  3. AZATHIOPRINE [Concomitant]
     Active Substance: AZATHIOPRINE
     Indication: Product used for unknown indication

REACTIONS (2)
  - Fistula [Not Recovered/Not Resolved]
  - Blood test abnormal [Recovering/Resolving]

NARRATIVE: CASE EVENT DATE: 20221229
